FAERS Safety Report 10009887 (Version 2)
Quarter: 2014Q1

REPORT INFORMATION
  Report Type: Spontaneous
  Country: US (occurrence: US)
  Receive Date: 20140312
  Receipt Date: 20140312
  Transmission Date: 20141002
  Serious: No
  Sender: FDA-Public Use
  Company Number: US-INCYTE CORPORATION-2012IN002412

PATIENT
  Age: 87 Year
  Sex: Male

DRUGS (10)
  1. JAKAFI [Suspect]
     Indication: MYELOFIBROSIS
     Dosage: 20 MG, BID
     Route: 048
     Dates: start: 20121015
  2. ASPIRIN [Concomitant]
     Dosage: 81 MG, UNK
  3. CRESTOR [Concomitant]
  4. LISINOPRIL [Concomitant]
  5. MEGESTROL [Concomitant]
  6. FERGON [Concomitant]
  7. STOOL SOFTENER [Concomitant]
  8. TRAVATAN [Concomitant]
  9. UNEZPRIL [Concomitant]
  10. DONEPEZIL HYDROCHLORIDE [Concomitant]

REACTIONS (7)
  - Chest pain [Unknown]
  - Nausea [Unknown]
  - Fatigue [Unknown]
  - Decreased appetite [Unknown]
  - Anaemia [Unknown]
  - Headache [Unknown]
  - Weight decreased [None]
